FAERS Safety Report 13081234 (Version 4)
Quarter: 2017Q2

REPORT INFORMATION
  Report Type: Spontaneous
  Country: US (occurrence: US)
  Receive Date: 20170103
  Receipt Date: 20170522
  Transmission Date: 20170830
  Serious: Yes (Death, Hospitalization)
  Sender: FDA-Public Use
  Company Number: US-JNJFOC-20161227172

PATIENT
  Sex: Male

DRUGS (1)
  1. INVEGA SUSTENNA [Suspect]
     Active Substance: PALIPERIDONE PALMITATE
     Indication: PRODUCT USED FOR UNKNOWN INDICATION
     Route: 030
     Dates: start: 201604

REACTIONS (6)
  - Respiratory disorder [Unknown]
  - Malaise [Unknown]
  - Panic reaction [Unknown]
  - Death [Fatal]
  - Anxiety [Unknown]
  - Blood glucose decreased [Unknown]
